FAERS Safety Report 6006988-X (Version None)
Quarter: 2008Q4

REPORT INFORMATION
  Report Type: 
  Country: None (occurrence: None)
  Receive Date: 20081217
  Receipt Date: 20080109
  Transmission Date: 20090506
  Serious: No
  Sender: FDA-Public Use
  Company Number: US-ASTRAZENECA-2007UW28204

PATIENT
  Sex: Female

DRUGS (3)
  1. CRESTOR [Suspect]
     Route: 048
  2. FOSAMAX [Concomitant]
  3. ASPIRIN [Concomitant]

REACTIONS (2)
  - HEPATIC ENZYME INCREASED [None]
  - PARAESTHESIA [None]
